FAERS Safety Report 8011649-1 (Version None)
Quarter: 2011Q4

REPORT INFORMATION
  Report Type: 
  Country: None (occurrence: None)
  Receive Date: 20111228
  Receipt Date: 20111220
  Transmission Date: 20120403
  Serious: Yes (Other)
  Sender: FDA-Public Use
  Company Number: JP-BRISTOL-MYERS SQUIBB COMPANY-16284358

PATIENT
  Age: 53 Year
  Sex: Female

DRUGS (6)
  1. SITAGLIPTIN PHOSPHATE [Concomitant]
  2. URSO 250 [Concomitant]
  3. METFORMIN HCL [Suspect]
     Indication: TYPE 2 DIABETES MELLITUS
     Dosage: 1500MG 22JUN10 INT26JUL11 (399D); 1000MG ON 25MAY INT22JUN10 (28D)
     Route: 048
     Dates: start: 20100525
  4. PERINDOPRIL ERBUMINE [Concomitant]
  5. AMARYL [Concomitant]
  6. ACTOS [Concomitant]

REACTIONS (1)
  - RHABDOMYOLYSIS [None]
